FAERS Safety Report 13626254 (Version 1)
Quarter: 2017Q2

REPORT INFORMATION
  Report Type: Spontaneous
  Country: US (occurrence: US)
  Receive Date: 20170607
  Receipt Date: 20170607
  Transmission Date: 20170830
  Serious: Yes (Life-Threatening, Hospitalization)
  Sender: FDA-Public Use
  Company Number: None

PATIENT
  Age: 61 Year
  Sex: Female
  Weight: 101.2 kg

DRUGS (12)
  1. CHLORTHALIDONE. [Concomitant]
     Active Substance: CHLORTHALIDONE
  2. MULTI VITAMIN [Concomitant]
     Active Substance: VITAMINS
  3. DICYCLOMINE [Concomitant]
     Active Substance: DICYCLOMINE HYDROCHLORIDE
  4. ASPIRIN. [Concomitant]
     Active Substance: ASPIRIN
  5. PANTAPRAZOLE [Concomitant]
     Active Substance: PANTOPRAZOLE SODIUM
  6. VIT-D [Concomitant]
  7. TYLENOL [Concomitant]
     Active Substance: ACETAMINOPHEN
  8. LANTUS [Concomitant]
     Active Substance: INSULIN GLARGINE
  9. LOSARTAN. [Concomitant]
     Active Substance: LOSARTAN
  10. TANZEUM [Suspect]
     Active Substance: ALBIGLUTIDE
     Indication: DIABETES MELLITUS
     Dosage: QUANTITY:1 INJECTION(S);OTHER FREQUENCY:ONCE A WEEK;OTHER ROUTE:INJECTION TO LEG/ABDOMEN?
     Dates: start: 20170415, end: 20170526
  11. GLUCOSE METER [Concomitant]
  12. REGULAR INSULIN [Concomitant]
     Active Substance: INSULIN NOS

REACTIONS (4)
  - Colitis ischaemic [None]
  - Dehydration [None]
  - Vomiting [None]
  - Impaired work ability [None]

NARRATIVE: CASE EVENT DATE: 20170527
